FAERS Safety Report 16439762 (Version 1)
Quarter: 2019Q2

REPORT INFORMATION
  Report Type: Spontaneous
  Country: US (occurrence: US)
  Receive Date: 20190508
  Receipt Date: 20190508
  Transmission Date: 20190711
  Serious: No
  Sender: FDA-Public Use
  Company Number: None

PATIENT
  Age: 77 Year
  Sex: Female
  Weight: 50.8 kg

DRUGS (10)
  1. METOPROLOL SUCCINATE 25MG [Suspect]
     Active Substance: METOPROLOL SUCCINATE
     Indication: VENTRICULAR TACHYCARDIA
     Dosage: ?          QUANTITY:1 DF DOSAGE FORM;?
     Route: 048
     Dates: start: 20180829, end: 20190320
  2. CHIA SEEDS [Concomitant]
     Active Substance: OMEGA-3 FATTY ACIDS
  3. FERROUS GLUCONATE [Concomitant]
     Active Substance: FERROUS GLUCONATE
  4. METOPROLOL SUCCINATE. [Concomitant]
     Active Substance: METOPROLOL SUCCINATE
  5. WARFARIN [Concomitant]
     Active Substance: WARFARIN
  6. VITAMIN B12 [Concomitant]
     Active Substance: CYANOCOBALAMIN
  7. FLUTICASONE PROP [Concomitant]
     Active Substance: FLUTICASONE PROPIONATE
  8. CARBOXYMETHYLCELLULOSE NA [Concomitant]
  9. VITAMIN D3 [Concomitant]
     Active Substance: CHOLECALCIFEROL
  10. FLAX SEEDS [Concomitant]
     Active Substance: FLAX SEEDS

REACTIONS (13)
  - Vertigo [None]
  - Palpitations [None]
  - Nocturia [None]
  - Lethargy [None]
  - Peripheral coldness [None]
  - Insomnia [None]
  - Joint swelling [None]
  - Rhinorrhoea [None]
  - Headache [None]
  - Head discomfort [None]
  - Limb discomfort [None]
  - Dyspnoea [None]
  - Cough [None]

NARRATIVE: CASE EVENT DATE: 20180829
